FAERS Safety Report 18048660 (Version 1)
Quarter: 2020Q3

REPORT INFORMATION
  Report Type: Spontaneous
  Country: US (occurrence: US)
  Receive Date: 20200720
  Receipt Date: 20200720
  Transmission Date: 20201103
  Serious: No
  Sender: FDA-Public Use
  Company Number: None

PATIENT
  Age: 37 Year
  Sex: Female
  Weight: 63.5 kg

DRUGS (5)
  1. CLARINEX [Concomitant]
     Active Substance: DESLORATADINE
  2. VIT D 50,000 UNITS [Concomitant]
  3. ALBUTEROL SULFATE. [Suspect]
     Active Substance: ALBUTEROL SULFATE
     Indication: ASTHMA
     Route: 048
     Dates: start: 20200720
  4. VENTOLIN [Concomitant]
     Active Substance: ALBUTEROL SULFATE
  5. LEVOTHYROXINE 50MCG [Concomitant]
     Active Substance: LEVOTHYROXINE

REACTIONS (4)
  - Asthma [None]
  - Product substitution issue [None]
  - Dyspnoea [None]
  - Drug ineffective [None]

NARRATIVE: CASE EVENT DATE: 20200720
